FAERS Safety Report 4488190-6 (Version None)
Quarter: 2004Q4

REPORT INFORMATION
  Report Type: 
  Country: None (occurrence: None)
  Receive Date: 20041025
  Receipt Date: 20041012
  Transmission Date: 20050328
  Serious: Yes (Death, Hospitalization)
  Sender: FDA-Public Use
  Company Number: 2004078365

PATIENT
  Age: 61 Year
  Sex: Male

DRUGS (5)
  1. TAHOR (ATORVASTATIN) [Suspect]
     Indication: PROPHYLAXIS
     Dosage: 20 MG (1 IN 1 D),
  2. BISOPROLOL FUMARATE [Concomitant]
  3. NICARDIPINE HCL [Concomitant]
  4. TRIMETAZIDINE HYDROCHLORIDE (TRIMETAZIDINE HYDROCHLORIDE) [Concomitant]
  5. ACETYLSALICYLIC ACID SRT [Concomitant]

REACTIONS (1)
  - AORTIC ANEURYSM [None]
